FAERS Safety Report 17912626 (Version 4)
Quarter: 2021Q1

REPORT INFORMATION
  Report Type: Spontaneous
  Country: US (occurrence: US)
  Receive Date: 20200618
  Receipt Date: 20210331
  Transmission Date: 20210419
  Serious: Yes (Death)
  Sender: FDA-Public Use
  Company Number: US-AMNEAL PHARMACEUTICALS-2020-AMRX-01685

PATIENT
  Age: 46 Year
  Sex: Female
  Weight: 123 kg

DRUGS (9)
  1. FERROUS SULFATE. [Concomitant]
     Active Substance: FERROUS SULFATE
     Indication: IRON DEFICIENCY ANAEMIA
     Dosage: 324 MG, 3 DOSAGE FORM, DAILY (972 MG)
     Route: 048
     Dates: start: 20190507
  2. PROTONIX [OMEPRAZOLE] [Concomitant]
     Active Substance: OMEPRAZOLE
     Indication: GASTRECTOMY
     Dosage: 1 DOSAGE FORM, DAILY
     Route: 048
     Dates: start: 20181025
  3. VITAMIN D [ERGOCALCIFEROL] [Concomitant]
     Active Substance: ERGOCALCIFEROL
     Indication: VITAMIN D DECREASED
     Dosage: 40 INTERNATIONAL UNIT, DAILY
     Route: 048
     Dates: start: 20191018
  4. ELAGOLIX [Suspect]
     Active Substance: ELAGOLIX
     Indication: MENORRHAGIA
     Dosage: 300 MG, 1 DOSAGE FORM, DAILY (600 MG)
     Route: 048
     Dates: start: 20190924, end: 20200505
  5. VITAMIN B12 [Concomitant]
     Active Substance: CYANOCOBALAMIN
     Indication: VITAMIN B12 DEFICIENCY
     Dosage: 1 TABLETS, DAILY
     Route: 048
     Dates: start: 2015
  6. TYLENOL [Concomitant]
     Active Substance: ACETAMINOPHEN
     Indication: BACK PAIN
     Dosage: 650 MILLIGRAM, AS REQUIRED
     Route: 048
     Dates: start: 2015
  7. ACTIVELLA [Suspect]
     Active Substance: ESTRADIOL\NORETHINDRONE ACETATE
     Indication: MENORRHAGIA
     Dosage: 1 DOSAGE FORM, DAILY
     Route: 048
     Dates: start: 20190924, end: 20200505
  8. COLACE [Concomitant]
     Active Substance: DOCUSATE SODIUM
     Indication: CONSTIPATION PROPHYLAXIS
     Dosage: 100 MG, 2 DOSAGE FORM, DAILY
     Route: 048
     Dates: start: 20190507
  9. CONTRAVE [Concomitant]
     Active Substance: BUPROPION HYDROCHLORIDE\NALTREXONE HYDROCHLORIDE
     Indication: MEDICAL DIET
     Dosage: 1 TABLETS, DAILY
     Route: 048
     Dates: start: 20200210

REACTIONS (1)
  - Haemoperitoneum [Fatal]

NARRATIVE: CASE EVENT DATE: 20200505
